FAERS Safety Report 8272465-9 (Version None)
Quarter: 2012Q2

REPORT INFORMATION
  Report Type: 
  Country: None (occurrence: None)
  Receive Date: 20120410
  Receipt Date: 20120406
  Transmission Date: 20120825
  Serious: Yes (Death)
  Sender: FDA-Public Use
  Company Number: US-GILEAD-2012-0053059

PATIENT
  Sex: Male

DRUGS (8)
  1. LETAIRIS [Suspect]
     Indication: INTERSTITIAL LUNG DISEASE
  2. MULTI-VITAMINS [Concomitant]
  3. TYVASO [Concomitant]
  4. BONIVA [Concomitant]
  5. LETAIRIS [Suspect]
     Indication: SCLERODERMA
  6. LETAIRIS [Suspect]
     Indication: PULMONARY HYPERTENSION
     Dosage: 5 MG, UNK
     Route: 048
     Dates: start: 20120115, end: 20120216
  7. NEXIUM [Concomitant]
  8. ASPIRIN [Concomitant]

REACTIONS (3)
  - HYPOTENSION [None]
  - RESPIRATORY ARREST [None]
  - PULMONARY FIBROSIS [None]
